FAERS Safety Report 5933037-1 (Version None)
Quarter: 2008Q4

REPORT INFORMATION
  Report Type: 
  Country: None (occurrence: None)
  Receive Date: 20081023
  Receipt Date: 20060705
  Transmission Date: 20090506
  Serious: Yes (Hospitalization, Other)
  Sender: FDA-Public Use
  Company Number: 2006AL002216

PATIENT
  Age: 56 Year
  Sex: Male

DRUGS (6)
  1. DICLOFENAC SODIUM [Suspect]
     Indication: GOUT
     Dosage: 50 MG; TID; PO
     Route: 048
     Dates: start: 20051103, end: 20051103
  2. ATENOLOL [Concomitant]
  3. BENDROFLUAZIDE [Concomitant]
  4. ENALAPRIL MALEATE [Concomitant]
  5. INSULIN [Concomitant]
  6. OMEPRAZOLE [Concomitant]

REACTIONS (4)
  - ABDOMINAL DISTENSION [None]
  - LIVER FUNCTION TEST ABNORMAL [None]
  - RENAL IMPAIRMENT [None]
  - SEPSIS [None]
